FAERS Safety Report 21106224 (Version 1)
Quarter: 2022Q3

REPORT INFORMATION
  Report Type: Spontaneous
  Country: US (occurrence: None)
  Receive Date: 20220719
  Receipt Date: 20220719
  Transmission Date: 20221026
  Serious: No
  Sender: FDA-Public Use
  Company Number: None

PATIENT
  Age: 75 Year
  Sex: Male
  Weight: 110.22 kg

DRUGS (12)
  1. ABIRATERONE [Suspect]
     Active Substance: ABIRATERONE
     Indication: Prostate cancer
     Dosage: FREQUENCY : DAILY;?
     Route: 048
     Dates: start: 202205
  2. ATORVASTATIN CALCIUM [Concomitant]
     Active Substance: ATORVASTATIN CALCIUM
  3. CARAFATE [Suspect]
     Active Substance: SUCRALFATE
  4. Dorozolamide HCI [Concomitant]
  5. ECOTRIN [Concomitant]
  6. ELIGARD [Concomitant]
     Active Substance: LEUPROLIDE ACETATE
  7. FAMOTIDINE [Concomitant]
     Active Substance: FAMOTIDINE
  8. GEMFIBROZIL [Concomitant]
     Active Substance: GEMFIBROZIL
  9. HYDROCHLOROTHIAZIDE\LOSARTAN POTASSIUM [Concomitant]
     Active Substance: HYDROCHLOROTHIAZIDE\LOSARTAN POTASSIUM
  10. MAGNESIUM [Concomitant]
     Active Substance: MAGNESIUM
  11. MELOXICAM [Concomitant]
     Active Substance: MELOXICAM
  12. NOVOLIN NOS [Concomitant]
     Active Substance: INSULIN HUMAN

REACTIONS (1)
  - Cardiac failure congestive [None]
